FAERS Safety Report 5471368-2 (Version None)
Quarter: 2007Q3

REPORT INFORMATION
  Report Type: 
  Country: None (occurrence: None)
  Receive Date: 20070928
  Receipt Date: 20060908
  Transmission Date: 20080115
  Serious: No
  Sender: FDA-Public Use
  Company Number: US-BRISTOL-MYERS SQUIBB COMPANY-13503586

PATIENT
  Age: 64 Year
  Sex: Male
  Weight: 105 kg

DRUGS (1)
  1. DEFINITY [Suspect]
     Indication: ECHOCARDIOGRAM
     Dosage: 1.3ML DILUTED WITH 8.7 ML SALINE IV
     Route: 042
     Dates: start: 20060906, end: 20060906

REACTIONS (1)
  - BACK PAIN [None]
